FAERS Safety Report 8386767-9 (Version None)
Quarter: 2012Q2

REPORT INFORMATION
  Report Type: 
  Country: None (occurrence: None)
  Receive Date: 20120522
  Receipt Date: 20120522
  Transmission Date: 20120825
  Serious: Yes (Life-Threatening, Hospitalization)
  Sender: FDA-Public Use
  Company Number: None

PATIENT
  Sex: Female
  Weight: 6 kg

DRUGS (3)
  1. VITAMIN D360 2,000 IU PER DROP [Suspect]
     Indication: BREAST FEEDING
     Dosage: 1 DROPPERFUL -GIVEN BY MOM- DAILY PO
     Route: 048
     Dates: start: 20120326, end: 20120506
  2. VITAMIN D360 2,000 IU PER DROP [Suspect]
     Indication: NORMAL NEWBORN
     Dosage: 1 DROPPERFUL -GIVEN BY MOM- DAILY PO
     Route: 048
     Dates: start: 20120326, end: 20120506
  3. VITAMIN D360 2,000 IU PER DROP [Suspect]
     Indication: SUPPLEMENTATION THERAPY
     Dosage: 1 DROPPERFUL -GIVEN BY MOM- DAILY PO
     Route: 048
     Dates: start: 20120326, end: 20120506

REACTIONS (6)
  - INCORRECT DOSE ADMINISTERED [None]
  - DECREASED APPETITE [None]
  - FAILURE TO THRIVE [None]
  - HYPERCALCAEMIA [None]
  - TOXICITY TO VARIOUS AGENTS [None]
  - MEDICATION ERROR [None]
